FAERS Safety Report 5134908-9 (Version None)
Quarter: 2006Q4

REPORT INFORMATION
  Report Type: 
  Country: None (occurrence: None)
  Receive Date: 20061023
  Receipt Date: 20060712
  Transmission Date: 20070319
  Serious: Yes (Hospitalization)
  Sender: FDA-Public Use
  Company Number: DL2006323

PATIENT
  Age: 22 Year
  Sex: Female

DRUGS (2)
  1. MIFEPRISTONE TABLETS, 200 MG (DANCO LABS) [Suspect]
     Indication: ABORTION INDUCED
     Dosage: 200 MG, ORAL
     Route: 048
     Dates: start: 20060322
  2. MISOPROSTOL [Suspect]
     Dosage: 800 MCG, VAGINAL
     Route: 067
     Dates: start: 20060324

REACTIONS (2)
  - OSTEOMYELITIS [None]
  - SEPSIS [None]
